FAERS Safety Report 5788014-0 (Version None)
Quarter: 2008Q2

REPORT INFORMATION
  Report Type: 
  Country: None (occurrence: None)
  Receive Date: 20080625
  Receipt Date: 20080616
  Transmission Date: 20081010
  Serious: Yes (Life-Threatening, Hospitalization)
  Sender: FDA-Public Use
  Company Number: US-ELI_LILLY_AND_COMPANY-US200806003702

PATIENT
  Sex: Female

DRUGS (8)
  1. CYMBALTA [Suspect]
     Dosage: 1 D/F, UNK
  2. BYETTA [Concomitant]
     Dosage: 5 UG, UNK
     Route: 058
     Dates: start: 20080423, end: 20080428
  3. AVINZA [Concomitant]
     Dosage: 1 D/F, UNK
  4. CALCIUM [Concomitant]
     Dosage: 1 D/F, UNK
  5. NOVOLIN 70/30 [Concomitant]
  6. PRILOSEC [Concomitant]
     Dosage: 1 D/F, UNK
  7. SIMVASTATIN [Concomitant]
     Dosage: 1 D/F, UNK
  8. XANAX [Concomitant]

REACTIONS (8)
  - ACUTE MYOCARDIAL INFARCTION [None]
  - ENCEPHALOPATHY [None]
  - HEPATIC FAILURE [None]
  - MALAISE [None]
  - NAUSEA [None]
  - RENAL FAILURE [None]
  - RESPIRATORY FAILURE [None]
  - SHOCK [None]
